FAERS Safety Report 23296791 (Version 2)
Quarter: 2023Q4

REPORT INFORMATION
  Report Type: Spontaneous
  Country: US (occurrence: US)
  Receive Date: 20231214
  Receipt Date: 20231229
  Transmission Date: 20240109
  Serious: No
  Sender: FDA-Public Use
  Company Number: US-REATA PHARMACEUTICALS INC.-2023USRTAOMA000444

PATIENT

DRUGS (1)
  1. SKYCLARYS [Suspect]
     Active Substance: OMAVELOXOLONE
     Indication: Friedreich^s ataxia
     Dosage: 150 MILLIGRAM, QD
     Route: 048
     Dates: start: 202309

REACTIONS (9)
  - Nervousness [None]
  - Laryngitis [Unknown]
  - Fall [Unknown]
  - Muscular weakness [Unknown]
  - Skin exfoliation [Unknown]
  - Erythema [Unknown]
  - Skin infection [Unknown]
  - Food poisoning [Recovered/Resolved]
  - Back pain [Unknown]

NARRATIVE: CASE EVENT DATE: 20230101
